FAERS Safety Report 14054876 (Version 1)
Quarter: 2017Q4

REPORT INFORMATION
  Report Type: Spontaneous
  Country: US (occurrence: None)
  Receive Date: 20171006
  Receipt Date: 20171006
  Transmission Date: 20180321
  Serious: Yes (Hospitalization)
  Sender: FDA-Public Use
  Company Number: None

PATIENT
  Age: 72 Year
  Sex: Male
  Weight: 87.09 kg

DRUGS (1)
  1. VELCADE [Suspect]
     Active Substance: BORTEZOMIB
     Dates: end: 20170829

REACTIONS (3)
  - Dyspnoea at rest [None]
  - Oropharyngeal pain [None]
  - Hypoaesthesia [None]

NARRATIVE: CASE EVENT DATE: 20170922
